FAERS Safety Report 16046645 (Version 2)
Quarter: 2019Q1

REPORT INFORMATION
  Report Type: Spontaneous
  Country: US (occurrence: US)
  Receive Date: 20190307
  Receipt Date: 20190313
  Transmission Date: 20190418
  Serious: Yes (Life-Threatening, Hospitalization, Other)
  Sender: FDA-Public Use
  Company Number: US-PFIZER INC-2019096056

PATIENT
  Age: 69 Year
  Sex: Male
  Weight: 82 kg

DRUGS (1)
  1. LIDOCAINE HCL [Suspect]
     Active Substance: LIDOCAINE HYDROCHLORIDE
     Indication: PAIN
     Dosage: 4 ML, UNK (INCREMENTAL BOLUSES OF LIDOCAINE 1.5% THROUGH THIS CATHETER (4 ML ? 2, 10 MINUTES APART))
     Route: 040

REACTIONS (1)
  - Respiratory depression [Recovered/Resolved]
